FAERS Safety Report 7051705-8 (Version None)
Quarter: 2010Q4

REPORT INFORMATION
  Report Type: 
  Country: None (occurrence: None)
  Receive Date: 20101018
  Receipt Date: 20101018
  Transmission Date: 20110411
  Serious: Yes (Death)
  Sender: FDA-Public Use
  Company Number: None

PATIENT
  Age: 74 Year
  Sex: Female
  Weight: 81 kg

DRUGS (1)
  1. SUTENT [Suspect]
     Indication: HEPATIC NEOPLASM MALIGNANT
     Dosage: 37.5MG ONCE DAILY PO
     Route: 048
     Dates: start: 20100601, end: 20100927

REACTIONS (1)
  - HAEMOLYTIC URAEMIC SYNDROME [None]
